FAERS Safety Report 7905490-5 (Version None)
Quarter: 2011Q4

REPORT INFORMATION
  Report Type: 
  Country: None (occurrence: None)
  Receive Date: 20111110
  Receipt Date: 20111102
  Transmission Date: 20120403
  Serious: Yes (Other)
  Sender: FDA-Public Use
  Company Number: US-BIOGENIDEC-201328

PATIENT
  Age: 48 Year
  Sex: Female

DRUGS (10)
  1. NAPRELAN [Concomitant]
     Indication: PROPHYLAXIS
  2. AVONEX [Suspect]
     Indication: MULTIPLE SCLEROSIS
     Route: 030
     Dates: start: 20080201
  3. EPA (EICOSAPENTAENOIC ACID) [Concomitant]
  4. XANAX [Concomitant]
  5. L-CARNITINE [Concomitant]
  6. MELATONIN [Concomitant]
  7. CAL-MAG CITRATE [Concomitant]
  8. AVONEX [Suspect]
     Route: 030
     Dates: start: 20030901
  9. SACRO-B [Concomitant]
  10. GREEN TEA EXTRACT [Concomitant]

REACTIONS (3)
  - BREAST CANCER METASTATIC [None]
  - COLON CANCER [None]
  - RASH GENERALISED [None]
